FAERS Safety Report 22392959 (Version 4)
Quarter: 2023Q4

REPORT INFORMATION
  Report Type: Report from Study
  Country: IL (occurrence: IL)
  Receive Date: 20230601
  Receipt Date: 20231020
  Transmission Date: 20240109
  Serious: Yes (Hospitalization)
  Sender: FDA-Public Use
  Company Number: IL-JNJFOC-20220350741

PATIENT
  Age: 79 Year
  Sex: Female
  Weight: 53 kg

DRUGS (9)
  1. TECLISTAMAB [Suspect]
     Active Substance: TECLISTAMAB
     Indication: Plasma cell myeloma
     Dosage: ALSO REPORTED AS 159 MG
     Route: 058
     Dates: start: 20220112, end: 20220214
  2. TALQUETAMAB [Suspect]
     Active Substance: TALQUETAMAB
     Indication: Plasma cell myeloma
     Dosage: 800 UG/KG
     Route: 058
     Dates: start: 20220112, end: 20220214
  3. PIROXICAM [Concomitant]
     Active Substance: PIROXICAM
     Indication: Back pain
     Route: 048
     Dates: start: 20190101
  4. PIROXICAM [Concomitant]
     Active Substance: PIROXICAM
     Indication: COVID-19
     Route: 042
     Dates: start: 20220331, end: 20220405
  5. ACYCLOVIR [Concomitant]
     Active Substance: ACYCLOVIR
     Indication: Antiviral prophylaxis
     Route: 048
     Dates: start: 20190101
  6. AZENIL [AZITHROMYCIN] [Concomitant]
     Indication: Abdominal pain
     Route: 048
     Dates: start: 20221103, end: 20221107
  7. AZENIL [AZITHROMYCIN] [Concomitant]
     Indication: Diarrhoea
     Route: 048
     Dates: start: 20220707, end: 20220711
  8. NEUPOGEN [Concomitant]
     Active Substance: FILGRASTIM
     Indication: Neutrophil count decreased
     Route: 058
     Dates: start: 20220707, end: 20220710
  9. NEUPOGEN [Concomitant]
     Active Substance: FILGRASTIM
     Route: 058
     Dates: start: 20221027

REACTIONS (2)
  - COVID-19 [Recovered/Resolved]
  - Pneumonia [Recovered/Resolved]

NARRATIVE: CASE EVENT DATE: 20220227
